FAERS Safety Report 20845468 (Version 1)
Quarter: 2022Q2

REPORT INFORMATION
  Report Type: Spontaneous
  Country: US (occurrence: None)
  Receive Date: 20220518
  Receipt Date: 20220518
  Transmission Date: 20220721
  Serious: Yes (Hospitalization)
  Sender: FDA-Public Use
  Company Number: None

PATIENT
  Age: 67 Year
  Sex: Male
  Weight: 57 kg

DRUGS (1)
  1. ATEZOLIZUMAB [Suspect]
     Active Substance: ATEZOLIZUMAB
     Dates: start: 20210721, end: 20220113

REACTIONS (4)
  - Blood potassium decreased [None]
  - Hypokalaemia [None]
  - Proteinuria [None]
  - Colitis microscopic [None]

NARRATIVE: CASE EVENT DATE: 20211012
